FAERS Safety Report 4880244-5 (Version None)
Quarter: 2006Q1

REPORT INFORMATION
  Report Type: 
  Country: None (occurrence: None)
  Receive Date: 20060113
  Receipt Date: 20060103
  Transmission Date: 20060701
  Serious: Yes (Other)
  Sender: FDA-Public Use
  Company Number: US-ABBOTT-06P-163-0321139-00

PATIENT
  Age: 29 Year
  Sex: Female

DRUGS (2)
  1. CYCLOSPORINE [Suspect]
     Indication: IMMUNOSUPPRESSION
     Dosage: NOT REPORTED
  2. METHOTREXATE [Concomitant]
     Indication: IMMUNOSUPPRESSION

REACTIONS (1)
  - THROMBOTIC THROMBOCYTOPENIC PURPURA [None]
